FAERS Safety Report 16595187 (Version 3)
Quarter: 2019Q4

REPORT INFORMATION
  Report Type: Report from Study
  Country: US (occurrence: US)
  Receive Date: 20190718
  Receipt Date: 20191023
  Transmission Date: 20200122
  Serious: Yes (Hospitalization)
  Sender: FDA-Public Use
  Company Number: US-ACTELION-A-NJ2018-167150

PATIENT
  Sex: Female

DRUGS (1)
  1. OPSUMIT [Suspect]
     Active Substance: MACITENTAN
     Indication: PULMONARY ARTERIAL HYPERTENSION
     Dosage: 10 MG, QD
     Route: 048
     Dates: start: 20180102

REACTIONS (6)
  - Chronic obstructive pulmonary disease [Unknown]
  - Eye operation [Unknown]
  - Fall [Unknown]
  - Pain [Unknown]
  - Back pain [Unknown]
  - Cataract [Unknown]
